FAERS Safety Report 17629709 (Version 6)
Quarter: 2021Q4

REPORT INFORMATION
  Report Type: Report from Study
  Country: UA (occurrence: UA)
  Receive Date: 20200406
  Receipt Date: 20211028
  Transmission Date: 20220304
  Serious: Yes (Hospitalization)
  Sender: FDA-Public Use
  Company Number: UA-ROCHE-2573057

PATIENT
  Age: 64 Year
  Sex: Female
  Weight: 72 kg

DRUGS (13)
  1. IPATASERTIB [Suspect]
     Active Substance: IPATASERTIB
     Indication: HER2 negative breast cancer
     Dosage: DATE OF MOST RECENT DOSE OF IPATASERTIB PRIOR TO SAE ONSET: 16/MAR/2020 (400 MG)
     Route: 048
     Dates: start: 20190813
  2. ATEZOLIZUMAB [Suspect]
     Active Substance: ATEZOLIZUMAB
     Indication: HER2 negative breast cancer
     Dosage: DOSE OF LAST ATEZOLIZUMAB ADMINISTERED PRIOR TO SAE ONSET: 10/MAR/2020 AT 13: 35 (840 MG)
     Route: 041
     Dates: start: 20190813
  3. PACLITAXEL [Suspect]
     Active Substance: PACLITAXEL
     Indication: HER2 negative breast cancer
     Dosage: DOSE OF LAST PACLITAXEL ADMINISTERED PRIOR TO SAE ONSET: 10/MAR/2020 AT 2:59 PM (80 MG/M2) WHICH END
     Route: 042
     Dates: start: 20190813
  4. LOPERAMIDE [Suspect]
     Active Substance: LOPERAMIDE
     Indication: HER2 negative breast cancer
     Dosage: DATE OF MOST RECENT DOSE OF LOPERAMIDE PRIOR TO SAE ONSET: 13/OCT/2019 (4 MG)
     Route: 048
     Dates: start: 20190813
  5. MELDONIUM [Concomitant]
     Active Substance: MELDONIUM
     Route: 042
     Dates: start: 20190813
  6. BERLITION [Concomitant]
     Route: 042
     Dates: start: 20190813
  7. HEPTRAL [Concomitant]
     Active Substance: ADEMETIONINE
     Route: 042
     Dates: start: 20190813
  8. DEXAMETHASONE [Concomitant]
     Active Substance: DEXAMETHASONE
     Route: 042
     Dates: start: 20190813
  9. FAMOTIDINE [Concomitant]
     Active Substance: FAMOTIDINE
     Route: 042
     Dates: start: 20190813
  10. DIPHENHYDRAMINE [Concomitant]
     Active Substance: DIPHENHYDRAMINE
     Route: 042
     Dates: start: 20190813
  11. TRITACE PLUS [Concomitant]
     Indication: Essential hypertension
     Route: 048
     Dates: start: 20190731
  12. TRIMETAZIDINE DIHYDROCHLORIDE [Concomitant]
     Active Substance: TRIMETAZIDINE DIHYDROCHLORIDE
     Indication: Cardiotoxicity
     Route: 048
     Dates: start: 20190731
  13. GLUCOPHAGE XR [Concomitant]
     Active Substance: METFORMIN HYDROCHLORIDE
     Indication: Diabetes mellitus
     Route: 048
     Dates: start: 20190715

REACTIONS (1)
  - Tumour necrosis [Recovered/Resolved]

NARRATIVE: CASE EVENT DATE: 20200128
